FAERS Safety Report 5325840-6 (Version None)
Quarter: 2007Q2

REPORT INFORMATION
  Report Type: 
  Country: None (occurrence: None)
  Receive Date: 20070510
  Receipt Date: 20070501
  Transmission Date: 20071010
  Serious: Yes (Hospitalization)
  Sender: FDA-Public Use
  Company Number: 2007-02161

PATIENT
  Age: 73 Year
  Sex: Male

DRUGS (1)
  1. BACLOFEN [Suspect]
     Indication: HICCUPS
     Dosage: 5 MG, SINGLE
     Dates: start: 20060101, end: 20060101

REACTIONS (1)
  - ENCEPHALOPATHY [None]
